FAERS Safety Report 6057361-X (Version None)
Quarter: 2009Q1

REPORT INFORMATION
  Report Type: 
  Country: None (occurrence: None)
  Receive Date: 20090129
  Receipt Date: 20080318
  Transmission Date: 20090719
  Serious: No
  Sender: FDA-Public Use
  Company Number: US-BRISTOL-MYERS SQUIBB COMPANY-14119838

PATIENT
  Age: 62 Year
  Sex: Male

DRUGS (1)
  1. CEFZIL [Suspect]

REACTIONS (2)
  - COUGH [None]
  - WHEEZING [None]
